FAERS Safety Report 6104962-6 (Version None)
Quarter: 2009Q1

REPORT INFORMATION
  Report Type: 
  Country: None (occurrence: None)
  Receive Date: 20090306
  Receipt Date: 20090226
  Transmission Date: 20090719
  Serious: Yes (Hospitalization, Other)
  Sender: FDA-Public Use
  Company Number: US-AMGEN-QUU336021

PATIENT
  Sex: Male

DRUGS (2)
  1. ENBREL [Suspect]
     Indication: RHEUMATOID ARTHRITIS
     Route: 058
     Dates: start: 19980101
  2. METHOTREXATE [Concomitant]
     Route: 048

REACTIONS (9)
  - ANAEMIA [None]
  - BALANCE DISORDER [None]
  - EAR DISCOMFORT [None]
  - EAR PAIN [None]
  - FALL [None]
  - FRACTURED COCCYX [None]
  - INADEQUATE DIET [None]
  - SPINAL FRACTURE [None]
  - TINNITUS [None]
